FAERS Safety Report 21918883 (Version 3)
Quarter: 2024Q4

REPORT INFORMATION
  Report Type: Spontaneous
  Country: US (occurrence: US)
  Receive Date: 20230127
  Receipt Date: 20241020
  Transmission Date: 20250115
  Serious: No
  Sender: SANOFI AVENTIS
  Company Number: US-SA-SAC20230125000043

PATIENT
  Age: 38 Year
  Sex: Female
  Weight: 123.83 kg

DRUGS (1)
  1. FABRAZYME [Suspect]
     Active Substance: AGALSIDASE BETA
     Indication: Fabry^s disease
     Dosage: 130 MG, QOW
     Route: 042
     Dates: start: 20201028

REACTIONS (1)
  - Weight increased [Unknown]
